FAERS Safety Report 6937293-2 (Version None)
Quarter: 2010Q3

REPORT INFORMATION
  Report Type: 
  Country: None (occurrence: None)
  Receive Date: 20100823
  Receipt Date: 20100819
  Transmission Date: 20110219
  Serious: Yes (Life-Threatening, Hospitalization)
  Sender: FDA-Public Use
  Company Number: B0669865A

PATIENT
  Age: 80 Year
  Sex: Female

DRUGS (7)
  1. DIGOXIN [Suspect]
     Dosage: .125MG PER DAY
     Route: 048
     Dates: start: 20060101
  2. COREG [Suspect]
     Indication: HYPERTENSION
     Dosage: 80MG PER DAY
     Route: 048
     Dates: start: 20090318
  3. ALLOPURINOL [Suspect]
     Dosage: 300MG PER DAY
     Route: 048
     Dates: start: 20080524
  4. DIOVAN [Suspect]
     Indication: HYPERTENSION
     Dosage: 80MG PER DAY
     Route: 048
     Dates: start: 20090828
  5. BLINDED TRIAL MEDICATION [Suspect]
     Indication: CEREBROVASCULAR ACCIDENT PROPHYLAXIS
     Route: 048
     Dates: start: 20071128
  6. POTASSIUM [Concomitant]
     Indication: HYPERTENSION
     Route: 048
  7. ZOCOR [Concomitant]
     Route: 048
     Dates: start: 20081003

REACTIONS (2)
  - ILEUS [None]
  - NEPHROLITHIASIS [None]
